FAERS Safety Report 15752447 (Version 4)
Quarter: 2019Q3

REPORT INFORMATION
  Report Type: Spontaneous
  Country: US (occurrence: US)
  Receive Date: 20181221
  Receipt Date: 20190821
  Transmission Date: 20191004
  Serious: Yes (Hospitalization)
  Sender: FDA-Public Use
  Company Number: US-VIFOR (INTERNATIONAL) INC.-VIT-2018-12435

PATIENT
  Age: 66 Year
  Sex: Male

DRUGS (8)
  1. METOPROLOL TARTRATE. [Concomitant]
     Active Substance: METOPROLOL TARTRATE
  2. SODIUM BICARBONATE. [Concomitant]
     Active Substance: SODIUM BICARBONATE
  3. VELTASSA [Suspect]
     Active Substance: PATIROMER
     Route: 048
     Dates: start: 20180823, end: 2018
  4. VELTASSA [Suspect]
     Active Substance: PATIROMER
     Route: 048
  5. ALLOPURINOL. [Concomitant]
     Active Substance: ALLOPURINOL
  6. ASPIRIN. [Concomitant]
     Active Substance: ASPIRIN
  7. VELTASSA [Suspect]
     Active Substance: PATIROMER
     Indication: HYPERKALAEMIA
     Route: 048
     Dates: start: 20180607
  8. NOVOLIN [Concomitant]
     Active Substance: INSULIN HUMAN

REACTIONS (7)
  - Fluid retention [Unknown]
  - Pulmonary oedema [Unknown]
  - Hospitalisation [Unknown]
  - Product dose omission [Unknown]
  - Renal disorder [Unknown]
  - Thrombosis [Unknown]
  - Dialysis [Unknown]

NARRATIVE: CASE EVENT DATE: 2018
